FAERS Safety Report 20467121 (Version 4)
Quarter: 2022Q1

REPORT INFORMATION
  Report Type: Spontaneous
  Country: KR (occurrence: KR)
  Receive Date: 20220214
  Receipt Date: 20220310
  Transmission Date: 20220424
  Serious: Yes (Death, Other)
  Sender: FDA-Public Use
  Company Number: KR-BoehringerIngelheim-2022-BI-153351

PATIENT
  Age: 74 Year
  Sex: Male
  Weight: 82 kg

DRUGS (1)
  1. OFEV [Suspect]
     Active Substance: NINTEDANIB
     Indication: Idiopathic pulmonary fibrosis
     Dosage: 30 MINUTES AFTER BREAKFAST AND DINNER
     Route: 048
     Dates: start: 20211018, end: 20220109

REACTIONS (1)
  - Idiopathic pulmonary fibrosis [Fatal]
